FAERS Safety Report 10243431 (Version 1)
Quarter: 2014Q2

REPORT INFORMATION
  Report Type: Report from Study
  Country: US (occurrence: US)
  Receive Date: 20140618
  Receipt Date: 20140618
  Transmission Date: 20141212
  Serious: Yes (Hospitalization, Other)
  Sender: FDA-Public Use
  Company Number: US-SA-2014SA075959

PATIENT
  Age: 63 Year
  Sex: Female

DRUGS (3)
  1. LANTUS SOLOSTAR [Suspect]
     Indication: DIABETES MELLITUS
     Dosage: DOSE:50 UNIT(S)
     Route: 065
     Dates: start: 201308
  2. APIDRA [Concomitant]
     Dates: start: 201308
  3. SOLOSTAR [Concomitant]
     Dates: start: 201308

REACTIONS (4)
  - Catheterisation cardiac [Unknown]
  - Cataract operation [Unknown]
  - Hyperglycaemia [Recovered/Resolved]
  - Off label use [Unknown]
